FAERS Safety Report 7645379-2 (Version None)
Quarter: 2011Q3

REPORT INFORMATION
  Report Type: 
  Country: None (occurrence: None)
  Receive Date: 20110729
  Receipt Date: 20110726
  Transmission Date: 20111222
  Serious: Yes (Other)
  Sender: FDA-Public Use
  Company Number: US-PFIZER INC-2011144269

PATIENT
  Sex: Female

DRUGS (12)
  1. HYDROCODONE [Concomitant]
     Indication: PAIN
     Dosage: 350 MG, AS NEEDED
     Route: 048
  2. ZOLPIDEM [Concomitant]
     Dosage: 10 MG, AS NEEDED
  3. LOVAZA [Concomitant]
     Dosage: UNK
     Route: 048
  4. CALAN [Concomitant]
     Dosage: 240 MG, 1X/DAY
     Route: 048
  5. LISINOPRIL [Concomitant]
     Dosage: 40 MG, 1X/DAY
     Route: 048
  6. NEURONTIN [Concomitant]
     Dosage: 300 MG, 4X/DAY
  7. LIPITOR [Suspect]
     Indication: LOW DENSITY LIPOPROTEIN INCREASED
     Dosage: 40 MG, 1X/DAY
     Route: 048
     Dates: start: 20100701
  8. PROCARDIA [Concomitant]
     Dosage: 90 MG, 1X/DAY
     Route: 048
  9. SOMATROPIN [Concomitant]
     Indication: PAIN
     Dosage: 350 MG, AS NEEDED
  10. ATENOLOL [Concomitant]
     Dosage: 100 MG, 2X/DAY
  11. MAXALT-MLT [Concomitant]
     Indication: HEADACHE
     Dosage: 10 MG, AS NEEDED
  12. CELEBREX [Concomitant]
     Indication: ARTHRITIS
     Dosage: 200 MG, UNK
     Route: 048

REACTIONS (4)
  - LOWER LIMB FRACTURE [None]
  - MYALGIA [None]
  - FALL [None]
  - MUSCULAR WEAKNESS [None]
